FAERS Safety Report 5604802-5 (Version None)
Quarter: 2008Q1

REPORT INFORMATION
  Report Type: 
  Country: None (occurrence: None)
  Receive Date: 20080128
  Receipt Date: 20080115
  Transmission Date: 20080703
  Serious: Yes (Other)
  Sender: FDA-Public Use
  Company Number: GB-ELI_LILLY_AND_COMPANY-GB200801003163

PATIENT
  Age: 41 Year
  Sex: Female

DRUGS (3)
  1. FLUOXETINE [Suspect]
     Indication: DEPRESSION
     Dosage: 20 MG, DAILY (1/D)
     Route: 048
     Dates: start: 20071221, end: 20071227
  2. CEPHALEXIN [Concomitant]
     Dosage: 250 MG, UNK
     Route: 048
     Dates: start: 20071121
  3. CODEINE [Concomitant]
     Indication: PAIN
     Dosage: 30 MG, UNK
     Route: 048

REACTIONS (5)
  - DEPRESSION [None]
  - HEADACHE [None]
  - NAUSEA [None]
  - PYREXIA [None]
  - SUICIDAL IDEATION [None]
